FAERS Safety Report 13114743 (Version 1)
Quarter: 2017Q1

REPORT INFORMATION
  Report Type: Spontaneous
  Country: US (occurrence: US)
  Receive Date: 20170113
  Receipt Date: 20170113
  Transmission Date: 20170428
  Serious: No
  Sender: FDA-Public Use
  Company Number: US-009507513-1701USA000806

PATIENT
  Age: 68 Year
  Sex: Female

DRUGS (4)
  1. PREGABALIN. [Concomitant]
     Active Substance: PREGABALIN
     Indication: PRURITUS
     Dosage: 200 MG, TID
     Route: 048
  2. REMERON [Suspect]
     Active Substance: MIRTAZAPINE
     Dosage: 15 MG, QD
     Route: 048
  3. HYDROXYZINE [Concomitant]
     Active Substance: HYDROXYZINE HYDROCHLORIDE
     Indication: PRURITUS
     Dosage: 10 MG, TID
     Route: 048
  4. REMERON [Suspect]
     Active Substance: MIRTAZAPINE
     Indication: PRURITUS
     Dosage: 7.5 MG, QPM
     Route: 048

REACTIONS (3)
  - Somnolence [Unknown]
  - Off label use [Unknown]
  - Increased appetite [Unknown]
